FAERS Safety Report 8839429 (Version 1)
Quarter: 2012Q4

REPORT INFORMATION
  Report Type: Spontaneous
  Country: US (occurrence: None)
  Receive Date: 20121012
  Receipt Date: 20121012
  Transmission Date: 20130627
  Serious: No
  Sender: FDA-Public Use
  Company Number: None

PATIENT
  Age: 69 Year
  Sex: Female
  Weight: 64.41 kg

DRUGS (2)
  1. ESCITALOPRAM [Suspect]
     Indication: DEPRESSION
     Route: 048
     Dates: start: 20121003, end: 20121008
  2. ESCITALOPRAM [Suspect]
     Indication: ANXIETY
     Route: 048
     Dates: start: 20121003, end: 20121008

REACTIONS (10)
  - Hot flush [None]
  - Loss of consciousness [None]
  - Abdominal pain upper [None]
  - Gastrointestinal pain [None]
  - Skin disorder [None]
  - Formication [None]
  - Blood pressure increased [None]
  - Fatigue [None]
  - Asthenia [None]
  - Product substitution issue [None]
